FAERS Safety Report 5067127-5 (Version None)
Quarter: 2006Q3

REPORT INFORMATION
  Report Type: 
  Country: None (occurrence: None)
  Receive Date: 20060727
  Receipt Date: 20060718
  Transmission Date: 20061208
  Serious: Yes (Hospitalization)
  Sender: FDA-Public Use
  Company Number: 14430

PATIENT
  Age: 63 Year
  Sex: Female

DRUGS (6)
  1. METHOTREXATE [Suspect]
     Indication: RHEUMATOID ARTHRITIS
     Dosage: 7.5 MG WEEKLY IM
     Route: 030
     Dates: start: 20010101, end: 20060629
  2. HUMIRA [Suspect]
     Indication: RHEUMATOID ARTHRITIS
     Dosage: 40 MG PER CYCLE SC
     Route: 058
     Dates: start: 20041006, end: 20060629
  3. MEDROL [Concomitant]
  4. OMEPRAZEN [Concomitant]
  5. URSODEOXYCHOLIC ACID [Concomitant]
  6. COLECALCIFEROL [Concomitant]

REACTIONS (1)
  - BLADDER CANCER [None]
